FAERS Safety Report 6209299-2 (Version None)
Quarter: 2009Q2

REPORT INFORMATION
  Report Type: 
  Country: None (occurrence: None)
  Receive Date: 20090529
  Receipt Date: 20090519
  Transmission Date: 20091009
  Serious: Yes (Hospitalization)
  Sender: FDA-Public Use
  Company Number: IT-SANOFI-SYNTHELABO-A06200900261

PATIENT
  Sex: Female

DRUGS (4)
  1. ANSIOLIN [Concomitant]
     Indication: DEPRESSION
     Dosage: UNK
     Route: 048
     Dates: start: 20090401
  2. EUTIMIL [Suspect]
     Indication: DEPRESSION
     Route: 048
     Dates: start: 20090410, end: 20090420
  3. TEGRETOL [Suspect]
     Indication: DEPRESSION
     Route: 048
     Dates: start: 20090410, end: 20090420
  4. ZOLPIDEM TARTRATE [Suspect]
     Indication: DEPRESSION
     Route: 048
     Dates: start: 20090410, end: 20090420

REACTIONS (1)
  - STEVENS-JOHNSON SYNDROME [None]
